FAERS Safety Report 11142897 (Version 1)
Quarter: 2015Q2

REPORT INFORMATION
  Report Type: Spontaneous
  Country: NO (occurrence: NO)
  Receive Date: 20150525
  Receipt Date: 20150525
  Transmission Date: 20150821
  Serious: Yes (Disabling)
  Sender: FDA-Public Use
  Company Number: NO-BRISTOL-MYERS SQUIBB COMPANY-BMS-2015-030984

PATIENT
  Age: 36 Year
  Sex: Female

DRUGS (2)
  1. KENACORT-T [Suspect]
     Active Substance: TRIAMCINOLONE ACETONIDE
     Indication: BURSITIS
     Dosage: 40 MG, UNK
     Route: 065
     Dates: start: 201405
  2. LEDERSPAN [Suspect]
     Active Substance: TRIAMCINOLONE HEXACETONIDE
     Indication: BURSITIS
     Dosage: 20 MG, BID
     Route: 065
     Dates: start: 201405

REACTIONS (3)
  - Pain in extremity [Recovering/Resolving]
  - Lipoma [Recovering/Resolving]
  - Swelling [Recovering/Resolving]

NARRATIVE: CASE EVENT DATE: 20140702
